FAERS Safety Report 8246011-X (Version None)
Quarter: 2012Q1

REPORT INFORMATION
  Report Type: 
  Country: None (occurrence: None)
  Receive Date: 20120330
  Receipt Date: 20120327
  Transmission Date: 20120608
  Serious: Yes (Death, Other)
  Sender: FDA-Public Use
  Company Number: US-BAYER-201011555NA

PATIENT
  Age: 74 Year
  Sex: Male
  Weight: 73.469 kg

DRUGS (24)
  1. ZESTRIL [Concomitant]
     Dosage: 10MG
     Route: 048
     Dates: start: 20000823
  2. MANNITOL [Concomitant]
     Dosage: 25 G, UNK
     Route: 042
     Dates: start: 20021028, end: 20021028
  3. ALBUMIN (HUMAN) [Concomitant]
     Dosage: 12.5 G, UNK
     Route: 042
     Dates: start: 20021028, end: 20021028
  4. TRASYLOL [Suspect]
     Indication: AORTIC BYPASS
  5. PROTAMINE SULFATE [Concomitant]
     Dosage: UNK
     Dates: start: 20021028, end: 20021028
  6. VERSED [Concomitant]
     Dosage: UNK
     Dates: start: 20021028, end: 20021028
  7. NITROGLYCERIN [Concomitant]
     Dosage: 0.4MG
     Route: 060
     Dates: start: 20000817
  8. LASIX [Concomitant]
     Dosage: 20MG
     Route: 048
     Dates: start: 20000823
  9. PRAVACHOL [Concomitant]
     Dosage: 20MG
     Route: 048
     Dates: start: 20001227
  10. SODIUM BICARBONATE [Concomitant]
     Dosage: 50 MEQ, UNK
     Route: 042
     Dates: start: 20021028, end: 20021028
  11. HEPARIN [Concomitant]
     Dosage: 38000 U, UNK
     Route: 042
     Dates: start: 20021028
  12. ZINACEF [Concomitant]
     Dosage: 1.5 G, UNK
     Route: 042
     Dates: start: 20021028
  13. RED BLOOD CELLS [Concomitant]
     Dosage: 3 UNITS
     Dates: start: 20021028
  14. FRESH FROZEN PLASMA [Concomitant]
     Indication: COAGULOPATHY
     Dosage: 1 UNIT
  15. ASPIRIN [Concomitant]
  16. CELEBREX [Concomitant]
     Dosage: 200MG
     Route: 048
     Dates: start: 20000809
  17. INSULIN [Concomitant]
     Dosage: UNK
     Dates: start: 20021028, end: 20021028
  18. TRASYLOL [Suspect]
     Indication: MYECTOMY
  19. FENTANYL [Concomitant]
     Dosage: UNK
     Route: 042
     Dates: start: 20021028
  20. TRASYLOL [Suspect]
     Indication: CORONARY ARTERY BYPASS
     Dosage: 1 ML INITIAL DOSE FOLLOWED BY 50ML/HR INFUSION
     Route: 042
     Dates: start: 20021028, end: 20021028
  21. RED BLOOD CELLS [Concomitant]
     Indication: COAGULOPATHY
     Dosage: 3 UNITS
     Dates: start: 20021027
  22. PLAVIX [Concomitant]
     Dosage: 75MG
     Route: 048
     Dates: start: 20010425
  23. DARVOCET [Concomitant]
     Dosage: 100MG
     Route: 048
     Dates: start: 20001227
  24. AMBIEN [Concomitant]
     Dosage: 10 MG, UNK
     Route: 048

REACTIONS (14)
  - CEREBROVASCULAR ACCIDENT [None]
  - CARDIAC DISORDER [None]
  - DEPRESSION [None]
  - DEATH [None]
  - RENAL FAILURE [None]
  - ANXIETY [None]
  - INJURY [None]
  - ORGAN FAILURE [None]
  - FEAR [None]
  - PAIN [None]
  - RENAL INJURY [None]
  - UNEVALUABLE EVENT [None]
  - RENAL IMPAIRMENT [None]
  - ANHEDONIA [None]
